FAERS Safety Report 5334218-0 (Version None)
Quarter: 2007Q2

REPORT INFORMATION
  Report Type: 
  Country: None (occurrence: None)
  Receive Date: 20070525
  Receipt Date: 20070223
  Transmission Date: 20071010
  Serious: No
  Sender: FDA-Public Use
  Company Number: A0640773A

PATIENT
  Age: 47 Year
  Sex: Female

DRUGS (4)
  1. BACTROBAN [Suspect]
     Indication: NASAL DRYNESS
     Route: 045
     Dates: start: 20061201
  2. OMEPRAZOLE [Concomitant]
  3. NULEV [Concomitant]
  4. PROVERA [Concomitant]

REACTIONS (1)
  - DRUG INEFFECTIVE [None]
